FAERS Safety Report 9760428 (Version 1)
Quarter: 2013Q4

REPORT INFORMATION
  Report Type: Spontaneous
  Country: US (occurrence: US)
  Receive Date: 20131216
  Receipt Date: 20131216
  Transmission Date: 20140711
  Serious: No
  Sender: FDA-Public Use
  Company Number: US-PFIZER INC-2013358592

PATIENT
  Sex: 0

DRUGS (1)
  1. ZOLOFT [Suspect]
     Dosage: UNK

REACTIONS (5)
  - Oral discomfort [Unknown]
  - Glossodynia [Unknown]
  - Throat irritation [Unknown]
  - Oropharyngeal pain [Unknown]
  - Dysphonia [Unknown]
